FAERS Safety Report 4665814-1 (Version None)
Quarter: 2005Q2

REPORT INFORMATION
  Report Type: 
  Country: None (occurrence: None)
  Receive Date: 20050519
  Receipt Date: 20050216
  Transmission Date: 20051028
  Serious: No
  Sender: FDA-Public Use
  Company Number: US-GLAXOSMITHKLINE-A0545923A

PATIENT
  Age: 70 Year
  Sex: Male

DRUGS (9)
  1. AVODART [Suspect]
     Indication: BENIGN PROSTATIC HYPERPLASIA
     Dosage: 1CAP PER DAY
     Route: 048
  2. ALLEGRA [Concomitant]
  3. ALTACE [Concomitant]
  4. ATENOLOL [Concomitant]
  5. CELEBREX [Concomitant]
  6. MUCINEX [Concomitant]
  7. NEXIUM [Concomitant]
  8. PLAVIX [Concomitant]
  9. ZOCOR [Concomitant]

REACTIONS (2)
  - EJACULATION FAILURE [None]
  - LIBIDO DECREASED [None]
